FAERS Safety Report 4326612-1 (Version None)
Quarter: 2004Q1

REPORT INFORMATION
  Report Type: 
  Country: None (occurrence: None)
  Receive Date: 20040330
  Receipt Date: 20040319
  Transmission Date: 20041129
  Serious: Yes (Other)
  Sender: FDA-Public Use
  Company Number: PHEH2004US03227

PATIENT
  Age: 32 Year
  Sex: Female

DRUGS (5)
  1. SANDOSTATIN [Suspect]
     Indication: ACROMEGALY
     Dosage: 30CC(CONCEN:1MG/ML) 6QD
     Route: 058
     Dates: start: 20010101
  2. SANDOSTATIN [Suspect]
     Dosage: 20CC (1MG/ML)
  3. SANDOSTATIN [Suspect]
     Dosage: 10CC (1MG/ML) Q4H
  4. TRAZODONE HCL [Concomitant]
  5. LORAZEPAM [Concomitant]

REACTIONS (8)
  - ANXIETY [None]
  - DEPRESSION [None]
  - DISTURBANCE IN ATTENTION [None]
  - DRUG DEPENDENCE [None]
  - FATIGUE [None]
  - IMPAIRED DRIVING ABILITY [None]
  - JUDGEMENT IMPAIRED [None]
  - TREATMENT NONCOMPLIANCE [None]
